FAERS Safety Report 24246406 (Version 2)
Quarter: 2024Q4

REPORT INFORMATION
  Report Type: Spontaneous
  Country: US (occurrence: US)
  Receive Date: 20240825
  Receipt Date: 20241031
  Transmission Date: 20250115
  Serious: No
  Sender: ALEXION PHARMACEUTICALS
  Company Number: 2024A185922

PATIENT

DRUGS (8)
  1. BYDUREON BCISE [Suspect]
     Active Substance: EXENATIDE
     Dosage: 2 MILLIGRAM, UNK, FREQUENCY: UNK
     Route: 065
  2. BYDUREON BCISE [Suspect]
     Active Substance: EXENATIDE
     Dosage: 2 MILLIGRAM, UNK, FREQUENCY: UNK
  3. BYDUREON BCISE [Suspect]
     Active Substance: EXENATIDE
     Dosage: 2 MILLIGRAM, UNK, FREQUENCY: UNK
     Route: 065
  4. BYDUREON BCISE [Suspect]
     Active Substance: EXENATIDE
     Dosage: 2 MILLIGRAM, UNK, FREQUENCY: UNK
  5. BYDUREON [Suspect]
     Active Substance: EXENATIDE
     Dosage: FREQUENCY: UNK
     Route: 065
  6. BYDUREON [Suspect]
     Active Substance: EXENATIDE
     Dosage: FREQUENCY: UNK
  7. BYDUREON [Suspect]
     Active Substance: EXENATIDE
     Dosage: FREQUENCY: UNK
     Route: 065
  8. BYDUREON [Suspect]
     Active Substance: EXENATIDE
     Dosage: FREQUENCY: UNK

REACTIONS (4)
  - Myopia [Unknown]
  - Incorrect dose administered by device [Unknown]
  - Wrong technique in device usage process [Unknown]
  - Device delivery system issue [Unknown]
